FAERS Safety Report 15857546 (Version 1)
Quarter: 2019Q1

REPORT INFORMATION
  Report Type: Spontaneous
  Country: DE (occurrence: DE)
  Receive Date: 20190123
  Receipt Date: 20190123
  Transmission Date: 20190417
  Serious: Yes (Life-Threatening, Other)
  Sender: FDA-Public Use
  Company Number: DE-PFIZER INC-2019027845

PATIENT
  Sex: Male

DRUGS (1)
  1. RAMILICH [Suspect]
     Active Substance: RAMIPRIL
     Dosage: UNK
     Route: 048

REACTIONS (16)
  - Dyspnoea [Unknown]
  - Nasopharyngitis [Unknown]
  - Asthenia [Unknown]
  - Bronchospasm [Unknown]
  - Somnolence [Unknown]
  - Burning sensation [Unknown]
  - Bronchitis [Unknown]
  - Impaired work ability [Unknown]
  - Visual impairment [Unknown]
  - Erectile dysfunction [Unknown]
  - Arrhythmia [Unknown]
  - Extrasystoles [Unknown]
  - Disturbance in attention [Unknown]
  - Paraesthesia [Unknown]
  - Cough [Unknown]
  - Fatigue [Unknown]
